FAERS Safety Report 15836182 (Version 1)
Quarter: 2019Q1

REPORT INFORMATION
  Report Type: Spontaneous
  Country: US (occurrence: US)
  Receive Date: 20190117
  Receipt Date: 20190117
  Transmission Date: 20190417
  Serious: Yes (Death)
  Sender: FDA-Public Use
  Company Number: US-INSYS THERAPEUTICS, INC-INS201901-000304

PATIENT
  Age: 30 Year
  Sex: Female

DRUGS (11)
  1. BENZOYLECOGNINE [Suspect]
     Active Substance: BENZOYLECGONINE
     Route: 048
     Dates: start: 2017
  2. AMPHETAMINE [Suspect]
     Active Substance: AMPHETAMINE
     Route: 048
     Dates: start: 2017
  3. DELTA-9-CARBOXY-THC [Suspect]
     Active Substance: DELTA(9)-TETRAHYDROCANNABINOLIC ACID
     Route: 048
     Dates: start: 2017
  4. METHAMPHETAMINE [Suspect]
     Active Substance: METHAMPHETAMINE
     Route: 048
     Dates: start: 2017
  5. NORFENTANYL [Suspect]
     Active Substance: NORFENTANYL
     Route: 048
     Dates: start: 2017
  6. MARIJUANA [Suspect]
     Active Substance: CANNABIS SATIVA SUBSP. INDICA TOP
     Route: 048
     Dates: start: 2017
  7. FENTANYL. [Suspect]
     Active Substance: FENTANYL
     Indication: PRODUCT USED FOR UNKNOWN INDICATION
     Route: 048
     Dates: start: 2017
  8. COCAINE [Suspect]
     Active Substance: COCAINE
     Route: 048
     Dates: start: 2017
  9. BARBITURATE [Suspect]
     Active Substance: UNSPECIFIED INGREDIENT
     Route: 048
     Dates: start: 2017
  10. ACETAMINOPHEN. [Suspect]
     Active Substance: ACETAMINOPHEN
     Route: 048
     Dates: start: 2017
  11. BUTALBITAL [Suspect]
     Active Substance: BUTALBITAL
     Route: 048
     Dates: start: 2017

REACTIONS (2)
  - Drug abuse [Fatal]
  - Incorrect route of product administration [Unknown]

NARRATIVE: CASE EVENT DATE: 2017
